FAERS Safety Report 21559444 (Version 1)
Quarter: 2022Q4

REPORT INFORMATION
  Report Type: Spontaneous
  Country: US (occurrence: US)
  Receive Date: 20221107
  Receipt Date: 20221107
  Transmission Date: 20230113
  Serious: Yes (Other)
  Sender: FDA-Public Use
  Company Number: US-BAYER-2022A149220

PATIENT
  Age: 25 Year
  Sex: Female

DRUGS (2)
  1. ALKA-SELTZER PLUS DAY AND NIGHT SEVERE COLD AND FLU [Suspect]
     Active Substance: ACETAMINOPHEN\DEXTROMETHORPHAN HYDROBROMIDE\DOXYLAMINE SUCCINATE\GUAIFENESIN\PHENYLEPHRINE HYDROCHLO
     Indication: Hypersensitivity
     Dosage: UNK
     Route: 048
     Dates: start: 20221024, end: 20221024
  2. ALKA-SELTZER PLUS DAY AND NIGHT SEVERE COLD AND FLU [Suspect]
     Active Substance: ACETAMINOPHEN\DEXTROMETHORPHAN HYDROBROMIDE\DOXYLAMINE SUCCINATE\GUAIFENESIN\PHENYLEPHRINE HYDROCHLO
     Indication: Nasopharyngitis

REACTIONS (2)
  - Foreign body in throat [Recovered/Resolved]
  - Choking [Recovered/Resolved]

NARRATIVE: CASE EVENT DATE: 20221024
